FAERS Safety Report 13997710 (Version 1)
Quarter: 2017Q3

REPORT INFORMATION
  Report Type: Spontaneous
  Country: US (occurrence: US)
  Receive Date: 20170921
  Receipt Date: 20170921
  Transmission Date: 20171128
  Serious: No
  Sender: FDA-Public Use
  Company Number: US-TARO-2016TAR01059

PATIENT

DRUGS (1)
  1. LIDOCAINE OINTMENT USP 5% (UNFLAVORED) [Suspect]
     Active Substance: LIDOCAINE
     Indication: RADIOTHERAPY

REACTIONS (1)
  - Application site pain [Unknown]
